FAERS Safety Report 19913192 (Version 1)
Quarter: 2021Q4

REPORT INFORMATION
  Report Type: Spontaneous
  Country: FR (occurrence: FR)
  Receive Date: 20211004
  Receipt Date: 20211004
  Transmission Date: 20220303
  Serious: Yes (Hospitalization)
  Sender: FDA-Public Use
  Company Number: None

PATIENT
  Age: 70 Year
  Sex: Male

DRUGS (6)
  1. PIPERACILLIN SODIUM\TAZOBACTAM SODIUM [Suspect]
     Active Substance: PIPERACILLIN SODIUM\TAZOBACTAM SODIUM
     Indication: Lung disorder
     Dosage: 4 G FREQ:8 H;
     Route: 042
     Dates: start: 20210813, end: 20210823
  2. FUNGIZONE [Suspect]
     Active Substance: AMPHOTERICIN B
     Indication: Lung disorder
     Dosage: UNK
     Dates: start: 20210823
  3. CASPOFUNGIN [Suspect]
     Active Substance: CASPOFUNGIN
     Indication: Lung disorder
     Dosage: 70 MG, 1X/DAY
     Route: 042
     Dates: start: 20210817, end: 20210820
  4. VORICONAZOLE [Suspect]
     Active Substance: VORICONAZOLE
     Indication: Lung disorder
     Dosage: 400 MG, 1X/DAY
     Dates: start: 20210820, end: 20210827
  5. CILASTATIN SODIUM\IMIPENEM [Suspect]
     Active Substance: CILASTATIN SODIUM\IMIPENEM
     Indication: Lung disorder
     Route: 042
     Dates: start: 20210824, end: 20210827
  6. DAPTOMYCIN [Suspect]
     Active Substance: DAPTOMYCIN
     Indication: Lung disorder
     Route: 041
     Dates: start: 20210822, end: 20210824

REACTIONS (1)
  - Toxic skin eruption [Recovering/Resolving]

NARRATIVE: CASE EVENT DATE: 20210826
